FAERS Safety Report 6430984-1 (Version None)
Quarter: 2009Q4

REPORT INFORMATION
  Report Type: 
  Country: None (occurrence: None)
  Receive Date: 20091104
  Receipt Date: 20091026
  Transmission Date: 20100525
  Serious: Yes (Hospitalization)
  Sender: FDA-Public Use
  Company Number: 236364K09USA

PATIENT
  Age: 43 Year
  Sex: Female

DRUGS (1)
  1. REBIF [Suspect]
     Indication: MULTIPLE SCLEROSIS
     Dosage: 44 MCG, 3 IN 1 WEEKS SUBCUTANEOUS
     Route: 058
     Dates: start: 20090225

REACTIONS (5)
  - ANGER [None]
  - CRYING [None]
  - DEPRESSION [None]
  - SELF-INJURIOUS IDEATION [None]
  - SUICIDAL IDEATION [None]
